FAERS Safety Report 24317068 (Version 1)
Quarter: 2024Q3

REPORT INFORMATION
  Report Type: Spontaneous
  Country: FR (occurrence: FR)
  Receive Date: 20240913
  Receipt Date: 20240913
  Transmission Date: 20241016
  Serious: Yes (Life-Threatening, Disabling, Other)
  Sender: SANDOZ
  Company Number: FR-NOVPHSZ-PHHY2016FR186033

PATIENT
  Age: 44 Year
  Sex: Male

DRUGS (25)
  1. ADRIACIN [Suspect]
     Active Substance: DOXORUBICIN HYDROCHLORIDE
     Indication: Peripheral T-cell lymphoma unspecified stage IV
     Dosage: UNK
     Route: 065
  2. ADRIACIN [Suspect]
     Active Substance: DOXORUBICIN HYDROCHLORIDE
     Dosage: UNK, CYCLIC (4 CYCLES OF CHOEP)
     Route: 065
  3. ADCETRIS [Suspect]
     Active Substance: BRENTUXIMAB VEDOTIN
     Dosage: UNK
     Route: 042
  4. ADCETRIS [Suspect]
     Active Substance: BRENTUXIMAB VEDOTIN
     Dosage: UNK
     Route: 042
  5. ADCETRIS [Suspect]
     Active Substance: BRENTUXIMAB VEDOTIN
     Dosage: UNK
     Route: 042
  6. ADCETRIS [Suspect]
     Active Substance: BRENTUXIMAB VEDOTIN
     Indication: Peripheral T-cell lymphoma unspecified stage IV
     Dosage: UNK, CYCLIC (4 CYCLES)
     Route: 042
     Dates: start: 20150416
  7. BENDAMUSTINE [Suspect]
     Active Substance: BENDAMUSTINE
     Indication: Peripheral T-cell lymphoma unspecified stage IV
     Dosage: UNK, CYCLIC (3 CYCLES)
     Route: 042
  8. BENDAMUSTINE [Suspect]
     Active Substance: BENDAMUSTINE
     Dosage: UNK, CYCLIC (4 CYCLES OF CHOEP)
     Route: 065
  9. BRENTUXIMAB VEDOTIN [Suspect]
     Active Substance: BRENTUXIMAB VEDOTIN
     Indication: Product used for unknown indication
     Dosage: 2 WEEKS AFTER THE 2 ND CYCLE
     Route: 065
  10. CARBOPLATIN [Suspect]
     Active Substance: CARBOPLATIN
     Indication: Peripheral T-cell lymphoma unspecified stage IV
     Dosage: UNK UNK, CYCLIC (4 CYCLES OF CHOEP)
     Route: 065
  11. CYCLOPHOSPHAMIDE [Suspect]
     Active Substance: CYCLOPHOSPHAMIDE
     Indication: Peripheral T-cell lymphoma unspecified stage IV
     Dosage: UNK
     Route: 065
  12. CYTARABINE [Suspect]
     Active Substance: CYTARABINE
     Indication: Product used for unknown indication
     Dosage: DHAC
     Route: 065
  13. DEXAMETHASONE [Suspect]
     Active Substance: DEXAMETHASONE
     Indication: Peripheral T-cell lymphoma unspecified stage IV
     Route: 065
  14. ETOPOSIDE [Suspect]
     Active Substance: ETOPOSIDE
     Dosage: CEP
     Route: 065
  15. ETOPOSIDE [Suspect]
     Active Substance: ETOPOSIDE
     Indication: Peripheral T-cell lymphoma unspecified stage IV
     Dosage: UNK
     Route: 065
  16. ETOPOSIDE [Suspect]
     Active Substance: ETOPOSIDE
     Dosage: CHOEP
     Route: 065
  17. PREDNISONE ACETATE [Suspect]
     Active Substance: PREDNISONE ACETATE
     Dosage: CEP
     Route: 065
  18. PREDNISONE ACETATE [Suspect]
     Active Substance: PREDNISONE ACETATE
     Dosage: CHOEP
     Route: 065
  19. PREDNISONE ACETATE [Suspect]
     Active Substance: PREDNISONE ACETATE
     Indication: Peripheral T-cell lymphoma unspecified stage IV
     Dosage: UNK
     Route: 065
  20. PREDNISONE ACETATE [Suspect]
     Active Substance: PREDNISONE ACETATE
     Dosage: UNK
     Route: 065
  21. VALGANCICLOVIR [Suspect]
     Active Substance: VALGANCICLOVIR
     Indication: Antiretroviral therapy
     Dosage: 1800 MG
     Route: 048
  22. VALGANCICLOVIR [Suspect]
     Active Substance: VALGANCICLOVIR
     Dosage: 1800 MG, UNK
     Route: 048
  23. VALGANCICLOVIR [Suspect]
     Active Substance: VALGANCICLOVIR
     Dosage: 900 MG
     Route: 065
  24. VALGANCICLOVIR [Suspect]
     Active Substance: VALGANCICLOVIR
     Dosage: 900 MG, UNK
     Route: 065
  25. VINCRISTINE SULFATE [Suspect]
     Active Substance: VINCRISTINE SULFATE
     Indication: Peripheral T-cell lymphoma unspecified stage IV
     Dosage: UNK, CYCLIC (4 CYCLES OF CHOEP)
     Route: 065

REACTIONS (16)
  - Pyrexia [Unknown]
  - Dyspnoea [Unknown]
  - Blindness [Not Recovered/Not Resolved]
  - Alanine aminotransferase increased [Unknown]
  - Cytomegalovirus infection [Unknown]
  - Pneumonia [Unknown]
  - Gamma-glutamyltransferase increased [Unknown]
  - Hepatitis viral [Unknown]
  - Cytomegalovirus chorioretinitis [Not Recovered/Not Resolved]
  - Malignant neoplasm progression [Unknown]
  - T-cell lymphoma stage IV [Unknown]
  - Cytomegalovirus infection reactivation [Recovering/Resolving]
  - Septic shock [Unknown]
  - Nephropathy toxic [Unknown]
  - Drug ineffective [Unknown]
  - Off label use [Unknown]

NARRATIVE: CASE EVENT DATE: 20150707
